FAERS Safety Report 7200681-3 (Version None)
Quarter: 2010Q4

REPORT INFORMATION
  Report Type: 
  Country: None (occurrence: None)
  Receive Date: 20101228
  Receipt Date: 20101222
  Transmission Date: 20110411
  Serious: Yes (Death, Hospitalization)
  Sender: FDA-Public Use
  Company Number: DE-PFIZER INC-2010178010

PATIENT
  Age: 71 Year
  Sex: Female

DRUGS (7)
  1. TEMSIROLIMUS [Suspect]
     Indication: IMMUNOSUPPRESSION
     Dosage: 25 MG, 1X/DAY
     Route: 042
     Dates: start: 20100806, end: 20100806
  2. TEMSIROLIMUS [Suspect]
     Dosage: 25 MG, 1X/DAY
     Route: 042
     Dates: start: 20100820, end: 20100820
  3. TEMSIROLIMUS [Suspect]
     Dosage: 25 MG, 1X/DAY
     Route: 042
     Dates: start: 20100827, end: 20100827
  4. TEMSIROLIMUS [Suspect]
     Dosage: 25 MG, 1X/DAY
     Route: 042
     Dates: start: 20100903, end: 20100903
  5. SEVREDOL [Concomitant]
     Indication: PAIN
     Dosage: UNK
     Dates: start: 20100818, end: 20100920
  6. NOVALGIN [Concomitant]
     Indication: PAIN
     Dosage: UNK
     Route: 042
     Dates: start: 20100827, end: 20100919
  7. IBUPROFEN [Concomitant]
     Indication: PAIN
     Dosage: 600 MG, 3X/DAY
     Dates: start: 20100903, end: 20100920

REACTIONS (5)
  - ANAEMIA [None]
  - DIARRHOEA [None]
  - GENERAL PHYSICAL HEALTH DETERIORATION [None]
  - SEPSIS [None]
  - VOMITING [None]
